FAERS Safety Report 4463473-4 (Version None)
Quarter: 2004Q3

REPORT INFORMATION
  Report Type: 
  Country: None (occurrence: None)
  Receive Date: 20040928
  Receipt Date: 20040913
  Transmission Date: 20050211
  Serious: Yes (Death)
  Sender: FDA-Public Use
  Company Number: 800133

PATIENT
  Age: 2 Month
  Sex: Female
  Weight: 3 kg

DRUGS (7)
  1. EXTRANEAL [Suspect]
     Indication: DIALYSIS
     Dosage: 100 ML; Q2H; INTRAPERITONEAL
     Route: 033
     Dates: start: 20040514, end: 20040522
  2. EXTRANEAL [Suspect]
     Indication: HYPERGLYCAEMIA
     Dosage: 100 ML; Q2H; INTRAPERITONEAL
     Route: 033
     Dates: start: 20040514, end: 20040522
  3. EXTRANEAL [Suspect]
     Indication: RENAL HYPOPLASIA
     Dosage: 100 ML; Q2H; INTRAPERITONEAL
     Route: 033
     Dates: start: 20040514, end: 20040522
  4. PENTCILLIN [Concomitant]
  5. MODACIN [Concomitant]
  6. WAKOBITAL [Concomitant]
  7. DIANEAL [Concomitant]

REACTIONS (2)
  - MENINGITIS [None]
  - MULTI-ORGAN FAILURE [None]
